FAERS Safety Report 9589488 (Version 1)
Quarter: 2013Q4

REPORT INFORMATION
  Report Type: Spontaneous
  Country: US (occurrence: US)
  Receive Date: 20131003
  Receipt Date: 20131003
  Transmission Date: 20140711
  Serious: No
  Sender: FDA-Public Use
  Company Number: US-AMGEN-USASP2012070293

PATIENT
  Sex: Male
  Weight: 79.37 kg

DRUGS (6)
  1. ENBREL [Suspect]
     Indication: PSORIASIS
     Dosage: 50 MG, 2 TIMES/WK
     Route: 058
  2. ACIPHEX [Concomitant]
     Dosage: 20 MG, UNK
  3. LIALDA [Concomitant]
     Dosage: 1.2 G, UNK
  4. SIMVASTATIN [Concomitant]
     Dosage: 20 MG, UNK
  5. BUDESONIDE [Concomitant]
     Dosage: 3 MG, UNK
  6. GLUCOSAMINE + CHONDROITIN          /01625901/ [Concomitant]
     Dosage: UNK

REACTIONS (2)
  - Injection site urticaria [Unknown]
  - Injection site erythema [Unknown]
